FAERS Safety Report 12541792 (Version 4)
Quarter: 2016Q3

REPORT INFORMATION
  Report Type: Spontaneous
  Country: GB (occurrence: GB)
  Receive Date: 20160708
  Receipt Date: 20160822
  Transmission Date: 20161109
  Serious: Yes (Other)
  Sender: FDA-Public Use
  Company Number: GB-TEVA-673551ACC

PATIENT
  Sex: Male

DRUGS (11)
  1. CLOMIPRAMINE [Concomitant]
     Active Substance: CLOMIPRAMINE
     Indication: OBSESSIVE-COMPULSIVE DISORDER
     Dosage: UNK
     Dates: start: 20031218
  2. TRAZODONE [Concomitant]
     Active Substance: TRAZODONE HYDROCHLORIDE
     Indication: PRODUCT USED FOR UNKNOWN INDICATION
     Dosage: UNK
     Dates: end: 2004
  3. PAROXETINE HYDROCHLORIDE. [Suspect]
     Active Substance: PAROXETINE HYDROCHLORIDE
     Dosage: 40 MILLIGRAM DAILY;
     Route: 065
     Dates: start: 2000
  4. CIPRAMIL [Concomitant]
     Active Substance: CITALOPRAM HYDROBROMIDE
     Indication: PRODUCT USED FOR UNKNOWN INDICATION
     Dosage: UNK
     Dates: start: 20020418
  5. PAROXETINE. [Suspect]
     Active Substance: PAROXETINE
     Dosage: 30 MILLIGRAM DAILY;
     Route: 065
     Dates: start: 20010305
  6. EFFEXOR [Concomitant]
     Active Substance: VENLAFAXINE HYDROCHLORIDE
     Indication: PRODUCT USED FOR UNKNOWN INDICATION
     Dosage: UNK
     Dates: start: 20020610
  7. CIPRALEX [Concomitant]
     Active Substance: ESCITALOPRAM OXALATE
     Indication: PRODUCT USED FOR UNKNOWN INDICATION
     Dosage: UNK
     Dates: start: 20030613
  8. PROZAC [Concomitant]
     Active Substance: FLUOXETINE HYDROCHLORIDE
     Indication: PRODUCT USED FOR UNKNOWN INDICATION
     Dosage: UNK
     Dates: start: 20030918
  9. PAROXETINE. [Suspect]
     Active Substance: PAROXETINE
     Indication: PRODUCT USED FOR UNKNOWN INDICATION
     Dosage: 20 MILLIGRAM DAILY;
     Route: 065
     Dates: start: 19970210, end: 19970630
  10. PAROXETINE HYDROCHLORIDE. [Suspect]
     Active Substance: PAROXETINE HYDROCHLORIDE
     Dosage: 2 MILLIGRAM DAILY;
     Route: 065
  11. PAROXETINE HYDROCHLORIDE. [Suspect]
     Active Substance: PAROXETINE HYDROCHLORIDE
     Indication: OBSESSIVE-COMPULSIVE DISORDER
     Dosage: UNK
     Route: 065
     Dates: start: 19961211, end: 200302

REACTIONS (19)
  - Disorientation [Unknown]
  - Mood swings [Unknown]
  - Panic attack [Unknown]
  - Hyperhidrosis [Unknown]
  - Irritability [Unknown]
  - Confusional state [Unknown]
  - Withdrawal syndrome [Unknown]
  - Agitation [Unknown]
  - Amnesia [Unknown]
  - Fatigue [Unknown]
  - Obsessive-compulsive disorder [Unknown]
  - Depersonalisation/derealisation disorder [Unknown]
  - Anxiety [Unknown]
  - Phobia [Unknown]
  - Anger [Unknown]
  - Self-injurious ideation [Unknown]
  - Palpitations [Unknown]
  - Aggression [Unknown]
  - Paraesthesia [Unknown]

NARRATIVE: CASE EVENT DATE: 200106
